FAERS Safety Report 9595132 (Version 1)
Quarter: 2013Q3

REPORT INFORMATION
  Report Type: Spontaneous
  Country: US (occurrence: None)
  Receive Date: 20130927
  Receipt Date: 20130927
  Transmission Date: 20140515
  Serious: Yes (Other)
  Sender: FDA-Public Use
  Company Number: CABO-13003023

PATIENT
  Age: 73 Year
  Sex: Male

DRUGS (6)
  1. COMETRIQ [Suspect]
     Indication: THYROID CANCER
     Dosage: 100 MG, QD, ORAL
     Route: 048
     Dates: start: 20130715, end: 2013
  2. ATENOLOL (ATENOLOL) [Concomitant]
  3. LISINOPRIL (LISINOPRIL) [Concomitant]
  4. WARFARIN (WARFARIN) [Concomitant]
  5. LEVOXYL (LEVOTHYROXINE SODIUM) [Concomitant]
  6. VITAMIN E (TOCOPHEROL) [Concomitant]

REACTIONS (1)
  - Hypertension [None]
